FAERS Safety Report 25078055 (Version 3)
Quarter: 2025Q3

REPORT INFORMATION
  Report Type: Report from Study
  Country: MX (occurrence: MX)
  Receive Date: 20250314
  Receipt Date: 20250810
  Transmission Date: 20251021
  Serious: No
  Sender: ALEXION PHARMACEUTICALS
  Company Number: MX-AstraZeneca-CH-00825195A

PATIENT
  Age: 67 Year
  Sex: Female
  Weight: 72 kg

DRUGS (12)
  1. TEZEPELUMAB [Suspect]
     Active Substance: TEZEPELUMAB
     Indication: Asthma
     Dosage: 210 MILLIGRAM, QMONTH
     Dates: start: 20241212
  2. TEZEPELUMAB [Suspect]
     Active Substance: TEZEPELUMAB
  3. AZITHROMYCIN [Concomitant]
     Active Substance: AZITHROMYCIN
     Indication: Pain
     Dosage: 600 MILLIGRAM, QD
  4. CELEBREX [Concomitant]
     Active Substance: CELECOXIB
     Indication: Pain
     Dosage: 200 MILLIGRAM, QD
  5. ACETYLCYSTEINE [Concomitant]
     Active Substance: ACETYLCYSTEINE
     Dosage: 600 MILLIGRAM, QD
  6. LEVOTHYROXINE SODIUM [Concomitant]
     Active Substance: LEVOTHYROXINE SODIUM
     Dosage: 25 MICROGRAM, QD
     Dates: start: 2012
  7. LEVOTHYROXINE [Concomitant]
     Active Substance: LEVOTHYROXINE
     Dosage: 0.25 DOSAGE FORM, QD
  8. IPRATROPIUM BROMIDE [Concomitant]
     Active Substance: IPRATROPIUM BROMIDE
  9. RYALTRIS [Concomitant]
     Active Substance: MOMETASONE FUROATE MONOHYDRATE\OLOPATADINE HYDROCHLORIDE
     Indication: Asthma
     Dosage: 1 DOSAGE FORM, Q12H
     Dates: start: 20241212
  10. Alin [Concomitant]
     Indication: Asthmatic crisis
  11. BILASTINE [Concomitant]
     Active Substance: BILASTINE
     Dosage: UNK, QD
     Dates: start: 202412, end: 202505
  12. ALLEGRA [Concomitant]
     Active Substance: FEXOFENADINE HYDROCHLORIDE
     Indication: Rhinitis
     Dosage: 1 DOSAGE FORM, QD
     Dates: start: 202506

REACTIONS (8)
  - Laryngopharyngitis [Recovered/Resolved]
  - Asthma [Recovered/Resolved]
  - Rhinitis [Unknown]
  - Therapeutic response unexpected [Unknown]
  - Product dose omission issue [Unknown]
  - Inappropriate schedule of product administration [Unknown]
  - Hair growth abnormal [Unknown]
  - Pain [Recovered/Resolved]

NARRATIVE: CASE EVENT DATE: 20241212
